FAERS Safety Report 24251694 (Version 1)
Quarter: 2024Q3

REPORT INFORMATION
  Report Type: Spontaneous
  Country: CA (occurrence: CA)
  Receive Date: 20240827
  Receipt Date: 20240827
  Transmission Date: 20241016
  Serious: Yes (Other)
  Sender: ORGANON
  Company Number: CA-ORGANON-O2408USA001848

PATIENT
  Age: 43 Year
  Sex: Female

DRUGS (5)
  1. SINGULAIR [Suspect]
     Active Substance: MONTELUKAST SODIUM
     Indication: Angioedema
     Dosage: UNK
     Route: 065
  2. ATARAX [Suspect]
     Active Substance: HYDROXYZINE HYDROCHLORIDE
     Indication: Angioedema
     Dosage: UNK
     Route: 065
  3. BILASTINE [Suspect]
     Active Substance: BILASTINE
     Indication: Angioedema
     Dosage: UNK
     Route: 065
  4. CETIRIZINE [Suspect]
     Active Substance: CETIRIZINE HYDROCHLORIDE
     Indication: Angioedema
     Dosage: UNK
     Route: 065
  5. RUPATADINE FUMARATE [Suspect]
     Active Substance: RUPATADINE FUMARATE
     Indication: Angioedema
     Dosage: 20 MILLIGRAM, QD (EVERY 1 DAYS)
     Route: 048

REACTIONS (1)
  - Therapeutic response decreased [Unknown]
